FAERS Safety Report 21514016 (Version 2)
Quarter: 2022Q4

REPORT INFORMATION
  Report Type: Spontaneous
  Country: US (occurrence: US)
  Receive Date: 20221027
  Receipt Date: 20221107
  Transmission Date: 20230112
  Serious: Yes (Other)
  Sender: FDA-Public Use
  Company Number: US-SA-SAC20221026000070

PATIENT
  Age: 52 Year
  Sex: Male

DRUGS (1)
  1. ZANTAC [Suspect]
     Active Substance: RANITIDINE HYDROCHLORIDE
     Indication: Dyspepsia
     Dosage: UNK UNK, QD(UNKNOWN AT THIS TIME)
     Dates: start: 201402, end: 201811

REACTIONS (1)
  - Gastric cancer stage II [Recovered/Resolved]

NARRATIVE: CASE EVENT DATE: 20190501
